FAERS Safety Report 8899976 (Version 2)
Quarter: 2013Q1

REPORT INFORMATION
  Report Type: Spontaneous
  Country: DE (occurrence: DE)
  Receive Date: 20121109
  Receipt Date: 20130121
  Transmission Date: 20140127
  Serious: Yes (Other)
  Sender: FDA-Public Use
  Company Number: PHHY2012DE102183

PATIENT
  Age: 65 Year
  Sex: Male

DRUGS (1)
  1. ZOMETA [Suspect]
     Indication: PROSTATE CANCER
     Dosage: 4 MG/5ML
     Route: 042
     Dates: start: 201209

REACTIONS (2)
  - Osteitis [Unknown]
  - Device failure [Unknown]
